FAERS Safety Report 6679461-3 (Version None)
Quarter: 2010Q2

REPORT INFORMATION
  Report Type: 
  Country: None (occurrence: None)
  Receive Date: 20100413
  Receipt Date: 20100405
  Transmission Date: 20101027
  Serious: Yes (Other)
  Sender: FDA-Public Use
  Company Number: B0646451A

PATIENT
  Age: 7 Month
  Sex: Female

DRUGS (1)
  1. CLOBETASOL PROPIONATE [Suspect]
     Indication: DERMATITIS DIAPER
     Route: 061

REACTIONS (4)
  - CUSHING'S SYNDROME [None]
  - CUSHINGOID [None]
  - OBESITY [None]
  - OVERWEIGHT [None]
